FAERS Safety Report 11992472 (Version 3)
Quarter: 2016Q1

REPORT INFORMATION
  Report Type: Spontaneous
  Country: US (occurrence: US)
  Receive Date: 20160203
  Receipt Date: 20160316
  Transmission Date: 20160526
  Serious: Yes (Hospitalization, Other)
  Sender: FDA-Public Use
  Company Number: US-BEH-2016058214

PATIENT
  Age: 73 Year
  Sex: Male
  Weight: 72 kg

DRUGS (24)
  1. EPIPEN [Concomitant]
     Active Substance: EPINEPHRINE
  2. CALCIUM [Concomitant]
     Active Substance: CALCIUM
  3. FLONASE [Concomitant]
     Active Substance: FLUTICASONE PROPIONATE
  4. LOSARTAN. [Concomitant]
     Active Substance: LOSARTAN
  5. ONDANSETRON [Concomitant]
     Active Substance: ONDANSETRON
  6. AZITHROMYCIN ANHYDROUS. [Concomitant]
     Active Substance: AZITHROMYCIN ANHYDROUS
  7. SEREVENT DISKUS [Concomitant]
     Active Substance: SALMETEROL XINAFOATE
  8. PREDNISONE. [Concomitant]
     Active Substance: PREDNISONE
  9. PROBIOTIC [Concomitant]
     Active Substance: PROBIOTICS NOS
  10. TORSEMIDE. [Concomitant]
     Active Substance: TORSEMIDE
  11. VITAMIN E [Concomitant]
     Active Substance: .ALPHA.-TOCOPHEROL
  12. LEVAQUIN [Concomitant]
     Active Substance: LEVOFLOXACIN
  13. TRAMADOL. [Concomitant]
     Active Substance: TRAMADOL
  14. BYSTOLIC [Concomitant]
     Active Substance: NEBIVOLOL HYDROCHLORIDE
  15. OXYGEN. [Concomitant]
     Active Substance: OXYGEN
  16. POLYETHYLENE [Concomitant]
     Active Substance: HIGH DENSITY POLYETHYLENE
  17. AMINO ACID [Concomitant]
  18. HIZENTRA [Suspect]
     Active Substance: HUMAN IMMUNOGLOBULIN G
     Indication: IMMUNODEFICIENCY COMMON VARIABLE
     Route: 058
     Dates: start: 20110517
  19. HIZENTRA [Suspect]
     Active Substance: HUMAN IMMUNOGLOBULIN G
     Route: 058
     Dates: start: 20110517
  20. HIZENTRA [Suspect]
     Active Substance: HUMAN IMMUNOGLOBULIN G
     Route: 058
     Dates: start: 20110517
  21. VITAMIN D [Concomitant]
     Active Substance: CHOLECALCIFEROL
  22. FLUCONAZOLE. [Concomitant]
     Active Substance: FLUCONAZOLE
  23. PROAIR HFA [Concomitant]
     Active Substance: ALBUTEROL SULFATE
  24. NEXIUM [Concomitant]
     Active Substance: ESOMEPRAZOLE MAGNESIUM

REACTIONS (2)
  - Dyspnoea [Recovered/Resolved]
  - Cardiac disorder [Recovered/Resolved]

NARRATIVE: CASE EVENT DATE: 201601
